FAERS Safety Report 8933622 (Version 1)
Quarter: 2012Q4

REPORT INFORMATION
  Report Type: 
  Country: FR (occurrence: FR)
  Receive Date: 20121129
  Receipt Date: 20121129
  Transmission Date: 20130627
  Serious: Yes (Other)
  Sender: FDA-Public Use
  Company Number: FR-SANOFI-AVENTIS-2012SA087026

PATIENT
  Sex: Female

DRUGS (2)
  1. TAVANIC [Suspect]
     Indication: OSTEITIS
     Route: 048
     Dates: start: 201211
  2. RIFADINE [Suspect]
     Indication: OSTEITIS
     Route: 048
     Dates: start: 201211

REACTIONS (1)
  - Tooth discolouration [Not Recovered/Not Resolved]
